FAERS Safety Report 6141694-2 (Version None)
Quarter: 2009Q2

REPORT INFORMATION
  Report Type: 
  Country: None (occurrence: None)
  Receive Date: 20090402
  Receipt Date: 20090323
  Transmission Date: 20091009
  Serious: Yes (Hospitalization, Other)
  Sender: FDA-Public Use
  Company Number: GB-BAUSCH-2009BL001311

PATIENT
  Age: 9 Year
  Sex: Male

DRUGS (11)
  1. PREDNISOLONE [Suspect]
     Indication: PROPHYLAXIS AGAINST TRANSPLANT REJECTION
  2. ABACAVIR [Suspect]
     Indication: ANTI-INFECTIVE THERAPY
  3. CO-TRIMOXAZOLE [Suspect]
     Indication: PROPHYLAXIS
  4. DIDANOSINE [Suspect]
     Indication: ANTI-INFECTIVE THERAPY
  5. EFAVIRENZ [Suspect]
     Indication: ANTI-INFECTIVE THERAPY
  6. LAMIVUDINE [Suspect]
     Indication: ANTI-INFECTIVE THERAPY
  7. MYCOPHENOLATE MOFETIL [Suspect]
     Indication: PROPHYLAXIS AGAINST TRANSPLANT REJECTION
  8. NELFINAVIR [Suspect]
     Indication: ANTI-INFECTIVE THERAPY
  9. RALTEGRAVIR [Suspect]
     Indication: ANTI-INFECTIVE THERAPY
  10. SIROLIMUS [Suspect]
     Indication: PROPHYLAXIS AGAINST TRANSPLANT REJECTION
  11. ZIDOVUDINE [Suspect]
     Indication: ANTI-INFECTIVE THERAPY

REACTIONS (14)
  - CACHEXIA [None]
  - DRUG TOXICITY [None]
  - GRAFT DYSFUNCTION [None]
  - HEPATIC ENCEPHALOPATHY [None]
  - HEPATIC FAILURE [None]
  - HEPATIC FUNCTION ABNORMAL [None]
  - HYPERLIPIDAEMIA [None]
  - HYPERTENSION [None]
  - LYMPHADENOPATHY [None]
  - MYOPATHY [None]
  - PHARYNGITIS [None]
  - RASH [None]
  - RENAL IMPAIRMENT [None]
  - TRANSPLANT REJECTION [None]
